FAERS Safety Report 9753102 (Version 1)
Quarter: 2013Q4

REPORT INFORMATION
  Report Type: Spontaneous
  Country: US (occurrence: US)
  Receive Date: 20131213
  Receipt Date: 20131213
  Transmission Date: 20140711
  Serious: No
  Sender: FDA-Public Use
  Company Number: US-GILEAD-2010-0026324

PATIENT
  Age: 63 Year
  Sex: Female

DRUGS (9)
  1. LETAIRIS [Suspect]
     Indication: PULMONARY ARTERIAL HYPERTENSION
     Route: 048
     Dates: start: 200902
  2. REMODULIN [Concomitant]
     Dates: start: 200904
  3. PROCARDIA [Concomitant]
  4. ALDACTONE [Concomitant]
  5. FUROSEMIDE [Concomitant]
  6. HYDROCODONE [Concomitant]
  7. ADVAIR [Concomitant]
  8. LISINOPRIL/HCTZ [Concomitant]
  9. LANTUS INSULIN [Concomitant]

REACTIONS (1)
  - Pain in extremity [Unknown]
